FAERS Safety Report 23596559 (Version 1)
Quarter: 2024Q1

REPORT INFORMATION
  Report Type: Spontaneous
  Country: US (occurrence: US)
  Receive Date: 20240305
  Receipt Date: 20240305
  Transmission Date: 20240410
  Serious: No
  Sender: FDA-Public Use
  Company Number: US-FreseniusKabi-FK202403014

PATIENT
  Age: 68 Year
  Sex: Female

DRUGS (4)
  1. COLISTIMETHATE SODIUM [Suspect]
     Active Substance: COLISTIMETHATE SODIUM
     Indication: Bronchiectasis
     Dosage: ROUTE: INHALATION VIA NEBULIZER (AS PER PHYSICIAN ORDERS)?INJECTION?DOSE AND FREQUENCY: 150 MG BID(M
     Dates: start: 20240208
  2. ZERBAXA [Concomitant]
     Active Substance: CEFTOLOZANE SULFATE\TAZOBACTAM SODIUM
     Indication: Product used for unknown indication
     Dosage: ROUTE: INTRAVENOUS
     Route: 042
  3. AZITHROMYCIN [Concomitant]
     Active Substance: AZITHROMYCIN
     Indication: Product used for unknown indication
     Dosage: PO
     Route: 048
  4. ALBUTEROL [Concomitant]
     Active Substance: ALBUTEROL
     Indication: Product used for unknown indication
     Dosage: INHALER BID
     Route: 055

REACTIONS (2)
  - Off label use [Recovered/Resolved]
  - Injury associated with device [Recovered/Resolved]
